FAERS Safety Report 19012615 (Version 1)
Quarter: 2021Q1

REPORT INFORMATION
  Report Type: Spontaneous
  Country: US (occurrence: US)
  Receive Date: 20210316
  Receipt Date: 20210316
  Transmission Date: 20210420
  Serious: Yes (Other)
  Sender: FDA-Public Use
  Company Number: US-PFIZER INC-2021235092

PATIENT
  Age: 79 Year
  Sex: Female
  Weight: 62.14 kg

DRUGS (1)
  1. COLESTIPOL HCL [Suspect]
     Active Substance: COLESTIPOL HYDROCHLORIDE
     Indication: LIVER DISORDER
     Dosage: 2 G, DAILY
     Route: 048

REACTIONS (4)
  - Choking [Unknown]
  - Dyspnoea [Unknown]
  - Off label use [Unknown]
  - Dysphagia [Unknown]

NARRATIVE: CASE EVENT DATE: 20210302
